FAERS Safety Report 15836937 (Version 2)
Quarter: 2019Q1

REPORT INFORMATION
  Report Type: Spontaneous
  Country: JP (occurrence: JP)
  Receive Date: 20190117
  Receipt Date: 20190214
  Transmission Date: 20190417
  Serious: Yes (Other)
  Sender: FDA-Public Use
  Company Number: JP-ROCHE-2246272

PATIENT
  Age: 85 Year
  Sex: Female

DRUGS (5)
  1. XOFLUZA [Suspect]
     Active Substance: BALOXAVIR MARBOXIL
     Indication: INFLUENZA
     Route: 048
     Dates: start: 20181221, end: 20181221
  2. TELMISARTAN. [Concomitant]
     Active Substance: TELMISARTAN
  3. ZETIA [Concomitant]
     Active Substance: EZETIMIBE
  4. PIOGLITAZONE. [Concomitant]
     Active Substance: PIOGLITAZONE
  5. MARIZEV [Concomitant]

REACTIONS (2)
  - Pneumonia [Unknown]
  - Urinary retention [Unknown]

NARRATIVE: CASE EVENT DATE: 20181221
